FAERS Safety Report 12913356 (Version 2)
Quarter: 2016Q4

REPORT INFORMATION
  Report Type: Spontaneous
  Country: IT (occurrence: IT)
  Receive Date: 20161104
  Receipt Date: 20161129
  Transmission Date: 20170207
  Serious: Yes (Death, Hospitalization)
  Sender: FDA-Public Use
  Company Number: IT-GE HEALTHCARE MEDICAL DIAGNOSTICS-OMPQ-PR-1611S-2028

PATIENT
  Age: 85 Year
  Sex: Female

DRUGS (14)
  1. VANCOTEX [Suspect]
     Active Substance: VANCOMYCIN HYDROCHLORIDE
     Indication: INFECTION
     Route: 042
     Dates: start: 20161001, end: 20161023
  2. OMNIPAQUE [Suspect]
     Active Substance: IOHEXOL
     Indication: PRODUCT USED FOR UNKNOWN INDICATION
     Route: 065
     Dates: start: 20161014, end: 20161014
  3. CLOPIDOGREL [Suspect]
     Active Substance: CLOPIDOGREL BISULFATE
     Indication: CARDIAC DISORDER
     Route: 048
     Dates: start: 20161005, end: 20161023
  4. LASIX [Concomitant]
     Active Substance: FUROSEMIDE
     Route: 042
  5. MORFINA [Concomitant]
     Active Substance: MORPHINE HYDROCHLORIDE
     Route: 042
  6. LUVION [Concomitant]
     Active Substance: CANRENONE
  7. TRIAZOLAM. [Concomitant]
     Active Substance: TRIAZOLAM
  8. OMNIPAQUE [Suspect]
     Active Substance: IOHEXOL
     Indication: DIAGNOSTIC PROCEDURE
  9. KANRENOL [Concomitant]
     Active Substance: CANRENOATE POTASSIUM
  10. CARDIO ASA [Concomitant]
     Route: 048
  11. CLEXANE [Concomitant]
     Active Substance: ENOXAPARIN SODIUM
  12. LEVOFLOXACINA [Suspect]
     Active Substance: LEVOFLOXACIN
     Indication: INFECTION
     Route: 042
     Dates: start: 20161001, end: 20161023
  13. BISOPROLOL EMIFUMARATO [Concomitant]
  14. EUTIROX [Concomitant]
     Active Substance: LEVOTHYROXINE SODIUM

REACTIONS (2)
  - Skin exfoliation [Fatal]
  - Toxic epidermal necrolysis [Fatal]

NARRATIVE: CASE EVENT DATE: 20161016
